FAERS Safety Report 16960949 (Version 1)
Quarter: 2019Q4

REPORT INFORMATION
  Report Type: Report from Study
  Country: FR (occurrence: FR)
  Receive Date: 20191025
  Receipt Date: 20191025
  Transmission Date: 20200122
  Serious: Yes (Death, Other)
  Sender: FDA-Public Use
  Company Number: FR-TAKEDA-2019TUS059953

PATIENT

DRUGS (2)
  1. BORTEZOMIB. [Suspect]
     Active Substance: BORTEZOMIB
     Indication: PLASMA CELL MYELOMA
     Dosage: UNK
     Route: 065
  2. MELPHALAN. [Suspect]
     Active Substance: MELPHALAN
     Indication: PLASMA CELL MYELOMA
     Dosage: UNK
     Route: 065

REACTIONS (12)
  - Acute kidney injury [Unknown]
  - Cardiovascular disorder [Unknown]
  - Death [Fatal]
  - Gastrointestinal disorder [Unknown]
  - Cytopenia [Unknown]
  - Septic shock [Unknown]
  - Lung disorder [Unknown]
  - General physical condition abnormal [Unknown]
  - Pyrexia [Unknown]
  - Toxic skin eruption [Unknown]
  - Orthostatic hypotension [Unknown]
  - Neuropathy peripheral [Unknown]
